FAERS Safety Report 9138781 (Version 1)
Quarter: 2013Q1

REPORT INFORMATION
  Report Type: Spontaneous
  Country: US (occurrence: US)
  Receive Date: 20130305
  Receipt Date: 20130305
  Transmission Date: 20140127
  Serious: Yes (Other)
  Sender: FDA-Public Use
  Company Number: US-ENDO PHARMACEUTICALS INC.-PERC20100085

PATIENT
  Age: 32 Year
  Sex: Male
  Weight: 88.53 kg

DRUGS (4)
  1. PERCOCET [Suspect]
     Indication: WRIST FRACTURE
     Route: 048
  2. CHANTIX [Suspect]
     Indication: SMOKING CESSATION THERAPY
     Route: 048
     Dates: start: 200906
  3. CHANTIX [Suspect]
     Route: 048
  4. METHADONE [Concomitant]
     Indication: DEPENDENCE
     Dates: start: 20091113

REACTIONS (2)
  - Drug dependence [Unknown]
  - Drug screen positive [Recovered/Resolved]
